FAERS Safety Report 16691747 (Version 1)
Quarter: 2019Q3

REPORT INFORMATION
  Report Type: Spontaneous
  Country: JP (occurrence: JP)
  Receive Date: 20190812
  Receipt Date: 20190812
  Transmission Date: 20191004
  Serious: Yes (Hospitalization)
  Sender: FDA-Public Use
  Company Number: JP-TEVA-2019-JP-1090705

PATIENT
  Age: 64 Year
  Sex: Female

DRUGS (1)
  1. LEVOFLOXACIN. [Suspect]
     Active Substance: LEVOFLOXACIN
     Indication: CYSTITIS
     Route: 048

REACTIONS (4)
  - Hyperventilation [Recovering/Resolving]
  - Respiratory alkalosis [Recovering/Resolving]
  - Toxic encephalopathy [Recovered/Resolved]
  - Hallucination, visual [Recovered/Resolved]
